FAERS Safety Report 9523985 (Version 1)
Quarter: 2013Q1

REPORT INFORMATION
  Report Type: Spontaneous
  Country: US (occurrence: None)
  Receive Date: 20130305
  Receipt Date: 20130305
  Transmission Date: 20140127
  Serious: Yes (Hospitalization)
  Sender: FDA-Public Use
  Company Number: 163-21880-12070842

PATIENT
  Age: 65 Year
  Sex: Male
  Weight: 83.46 kg

DRUGS (15)
  1. REVLIMID [Suspect]
     Indication: PLASMA CELL MYELOMA
     Route: 048
     Dates: start: 20120316, end: 20120626
  2. VITAMIN D (ERGOCALCIFEROL) [Concomitant]
  3. VICODIN (VICODIN) [Concomitant]
  4. PRILOSEC [Concomitant]
  5. NORVASC (AMLODIPINE BESILATE) [Concomitant]
  6. METOPROLOL (METOPROLOL) [Concomitant]
  7. LUNESTA (ESZOPICLONE) [Concomitant]
  8. LIDO (LIDOCAINE HYDROCHLORIDE) [Concomitant]
  9. LASIX (FUROSEMIDE) [Concomitant]
  10. NEURONTIN (GABAPENTIN) [Concomitant]
  11. CATAPRESS TTS [Concomitant]
  12. ALLOPURINOL [Concomitant]
  13. PREDNISONE (PREDNISONE) [Concomitant]
  14. VELCADE [Concomitant]
  15. DECADRON (DEXAMETHASONE) [Concomitant]

REACTIONS (4)
  - Pneumonia [None]
  - Pulmonary embolism [None]
  - Deep vein thrombosis [None]
  - Sepsis [None]
